FAERS Safety Report 4407825-7 (Version None)
Quarter: 2004Q3

REPORT INFORMATION
  Report Type: 
  Country: None (occurrence: None)
  Receive Date: 20040726
  Receipt Date: 20040602
  Transmission Date: 20050211
  Serious: Yes (Hospitalization, Other)
  Sender: FDA-Public Use
  Company Number: GB-GLAXOSMITHKLINE-B0334989A

PATIENT
  Age: 35 Year
  Sex: Female
  Weight: 72 kg

DRUGS (5)
  1. RETROVIR [Suspect]
     Indication: HIV INFECTION
     Dosage: 250MG TWICE PER DAY
     Route: 048
     Dates: start: 20010801
  2. DDI [Concomitant]
     Route: 065
     Dates: start: 20010801
  3. NEVIRAPINE [Concomitant]
     Route: 065
     Dates: start: 20010801
  4. ACYCLOVIR [Concomitant]
     Dosage: 400MG TWICE PER DAY
     Route: 048
     Dates: start: 20031201
  5. FOLIC ACID [Concomitant]
     Dosage: 5MG PER DAY
     Route: 048
     Dates: start: 20031201

REACTIONS (5)
  - ANAEMIA [None]
  - GASTROINTESTINAL HAEMORRHAGE [None]
  - HEPATIC FIBROSIS [None]
  - PORTAL HYPERTENSION [None]
  - VARICES OESOPHAGEAL [None]
